FAERS Safety Report 7231250-7 (Version None)
Quarter: 2011Q1

REPORT INFORMATION
  Report Type: 
  Country: None (occurrence: None)
  Receive Date: 20110118
  Receipt Date: 20110114
  Transmission Date: 20110831
  Serious: Yes (Other)
  Sender: FDA-Public Use
  Company Number: D0069947A

PATIENT
  Age: 70 Year
  Sex: Female

DRUGS (3)
  1. ARIXTRA [Suspect]
     Indication: THROMBOSIS
     Dosage: 2.5MG PER DAY
     Route: 058
  2. MARCUMAR [Concomitant]
     Indication: THROMBOSIS
     Route: 048
  3. HEPARIN [Concomitant]
     Indication: THROMBOSIS
     Route: 058

REACTIONS (2)
  - RENAL ARTERY STENOSIS [None]
  - RENAL SURGERY [None]
